FAERS Safety Report 10160253 (Version 1)
Quarter: 2014Q2

REPORT INFORMATION
  Report Type: Spontaneous
  Country: US (occurrence: None)
  Receive Date: 20140507
  Receipt Date: 20140507
  Transmission Date: 20141212
  Serious: Yes (Disabling)
  Sender: FDA-Public Use
  Company Number: None

PATIENT
  Age: 65 Year
  Sex: Male
  Weight: 104.33 kg

DRUGS (9)
  1. BUPROPION HCL [Suspect]
     Indication: DEPRESSION
     Dosage: 1 TABLET TIWCE A DAY
     Route: 048
     Dates: start: 20111015, end: 20111113
  2. LORAZEPAM [Concomitant]
  3. PROZAC [Concomitant]
  4. PREDNISONE [Concomitant]
  5. LYSINE [Concomitant]
  6. FOLIC ACID [Concomitant]
  7. CALCIUM [Concomitant]
  8. PRO-BIOTIC [Concomitant]
  9. OSTEOBIFLEX [Concomitant]

REACTIONS (4)
  - Vision blurred [None]
  - Prostate cancer [None]
  - Cataract operation [None]
  - Drug ineffective [None]
